FAERS Safety Report 24572970 (Version 1)
Quarter: 2024Q4

REPORT INFORMATION
  Report Type: Spontaneous
  Country: US (occurrence: US)
  Receive Date: 20241101
  Receipt Date: 20241101
  Transmission Date: 20250115
  Serious: Yes (Other)
  Sender: RADIUS PHARM
  Company Number: US-RADIUS HEALTH INC.-2024US008698

PATIENT
  Age: 73 Year
  Sex: Female

DRUGS (2)
  1. TYMLOS [Suspect]
     Active Substance: ABALOPARATIDE
     Indication: Senile osteoporosis
     Dosage: 80 MICROGRAM, QD
     Route: 058
     Dates: end: 202410
  2. MAGNESIUM [Suspect]
     Active Substance: MAGNESIUM
     Indication: Arrhythmia

REACTIONS (9)
  - Arrhythmia [Unknown]
  - Hypoaesthesia [Unknown]
  - Mass [Unknown]
  - Lip exfoliation [Unknown]
  - Paraesthesia [Unknown]
  - Vibratory sense increased [Unknown]
  - Drug hypersensitivity [Unknown]
  - Heart rate increased [Unknown]
  - Blood calcium increased [Unknown]

NARRATIVE: CASE EVENT DATE: 20241027
